FAERS Safety Report 7008753-3 (Version None)
Quarter: 2010Q3

REPORT INFORMATION
  Report Type: 
  Country: None (occurrence: None)
  Receive Date: 20100921
  Receipt Date: 20100915
  Transmission Date: 20110219
  Serious: Yes (Death)
  Sender: FDA-Public Use
  Company Number: 2010SP049317

PATIENT
  Age: 26 Year
  Sex: Female
  Weight: 85 kg

DRUGS (3)
  1. TEMODAL [Suspect]
     Indication: GLIOBLASTOMA
     Dosage: 180 MG; QD;
     Dates: start: 20100623, end: 20100720
  2. DEXAMETHASOME [Concomitant]
  3. CEDACID [Concomitant]

REACTIONS (1)
  - PANCYTOPENIA [None]
